FAERS Safety Report 10406427 (Version 1)
Quarter: 2014Q1

REPORT INFORMATION
  Report Type: Spontaneous
  Country: US (occurrence: None)
  Receive Date: 20140306
  Receipt Date: 20140306
  Transmission Date: 20141002
  Serious: Yes (Other)
  Sender: FDA-Public Use
  Company Number: 700355G

PATIENT
  Age: 61 Year
  Sex: Female

DRUGS (10)
  1. BONIVA [Suspect]
     Indication: OSTEOPOROSIS
     Dosage: (3MG, 1 IN 3 M, INTRAVENOUS (NOT OTHERWISE SPECIFIED), INTRAVENOUS
     Route: 042
     Dates: start: 200612, end: 200712
  2. ACTONEL [Suspect]
     Indication: OSTEOPOROSIS
  3. PREDNISONE [Concomitant]
  4. DICLOFENAC [Concomitant]
  5. CLINDAMYCIN [Concomitant]
  6. CYTOTEC (MISOPROSTOL) [Concomitant]
  7. PREMARIN (ESTROGENS, CONJUGATED [Concomitant]
  8. DARVOCET (PARACETAMOL, DEXTROPROPOXYPHENE NAPSYLATE) [Concomitant]
  9. VITAMIN D (VITAMIN D NOS) [Concomitant]
  10. METHOTREXATE [Concomitant]

REACTIONS (3)
  - Osteonecrosis of jaw [None]
  - Back pain [None]
  - Irritable bowel syndrome [None]
